FAERS Safety Report 10185304 (Version 1)
Quarter: 2014Q2

REPORT INFORMATION
  Report Type: Spontaneous
  Country: US (occurrence: US)
  Receive Date: 20140521
  Receipt Date: 20140521
  Transmission Date: 20141212
  Serious: No
  Sender: FDA-Public Use
  Company Number: US-PFIZER INC-2014135805

PATIENT
  Age: 44 Year
  Sex: Female
  Weight: 54.42 kg

DRUGS (5)
  1. LYRICA [Suspect]
     Indication: SCIATICA
     Dosage: 150 MG, 2X/DAY
     Dates: start: 2009, end: 20140512
  2. LYRICA [Suspect]
     Indication: NEURALGIA
  3. LYRICA [Suspect]
     Indication: NEUROPATHY PERIPHERAL
  4. LYRICA [Suspect]
     Indication: NERVE INJURY
  5. AMLODIPINE [Concomitant]
     Indication: HYPERTENSION
     Dosage: 10 MG, DAILY

REACTIONS (7)
  - Drug withdrawal syndrome [Unknown]
  - Diarrhoea [Unknown]
  - Pyrexia [Unknown]
  - Chills [Unknown]
  - Vomiting [Unknown]
  - Thinking abnormal [Unknown]
  - Crying [Unknown]
